FAERS Safety Report 20679667 (Version 3)
Quarter: 2022Q3

REPORT INFORMATION
  Report Type: Spontaneous
  Country: US (occurrence: US)
  Receive Date: 20220406
  Receipt Date: 20220901
  Transmission Date: 20221027
  Serious: Yes (Hospitalization)
  Sender: FDA-Public Use
  Company Number: US-PFIZER INC-202200168669

PATIENT
  Age: 9 Year
  Sex: Male

DRUGS (4)
  1. GENOTROPIN [Suspect]
     Active Substance: SOMATROPIN
     Indication: Short stature
     Dosage: 0.8 MG, CYCLIC (6 DAYS A WEEK)
  2. GENOTROPIN [Suspect]
     Active Substance: SOMATROPIN
     Indication: Growth hormone deficiency
     Dosage: 0.9 MG
     Dates: start: 202112
  3. GENOTROPIN [Suspect]
     Active Substance: SOMATROPIN
     Dosage: UNK, DAILY
  4. GENOTROPIN [Suspect]
     Active Substance: SOMATROPIN
     Dosage: 1.0 MG

REACTIONS (6)
  - Constipation [Unknown]
  - Overdose [Unknown]
  - Cardiac disorder [Unknown]
  - Mood altered [Not Recovered/Not Resolved]
  - Mood swings [Not Recovered/Not Resolved]
  - Social avoidant behaviour [Not Recovered/Not Resolved]

NARRATIVE: CASE EVENT DATE: 20220318
